FAERS Safety Report 14554588 (Version 12)
Quarter: 2021Q4

REPORT INFORMATION
  Report Type: Spontaneous
  Country: US (occurrence: US)
  Receive Date: 20180220
  Receipt Date: 20211223
  Transmission Date: 20220303
  Serious: Yes (Hospitalization, Other)
  Sender: FDA-Public Use
  Company Number: US-PFIZER INC-2017380233

PATIENT
  Age: 59 Year
  Sex: Female

DRUGS (1)
  1. LYRICA [Suspect]
     Active Substance: PREGABALIN
     Dosage: UNK

REACTIONS (14)
  - Pneumothorax [Unknown]
  - Abdominal discomfort [Unknown]
  - Hiatus hernia [Unknown]
  - Cough [Unknown]
  - Pneumonia aspiration [Unknown]
  - Pneumonia [Unknown]
  - Dyspnoea [Unknown]
  - Mental impairment [Unknown]
  - Illness [Unknown]
  - Stress [Unknown]
  - Back disorder [Unknown]
  - Nerve compression [Unknown]
  - Gastric disorder [Unknown]
  - Intentional product use issue [Unknown]

NARRATIVE: CASE EVENT DATE: 20200101
